FAERS Safety Report 7291778-0 (Version None)
Quarter: 2011Q1

REPORT INFORMATION
  Report Type: 
  Country: None (occurrence: None)
  Receive Date: 20110214
  Receipt Date: 20110114
  Transmission Date: 20110831
  Serious: Yes (Other)
  Sender: FDA-Public Use
  Company Number: IT-CELGENEUS-083-C5013-11011447

PATIENT
  Sex: Male
  Weight: 74 kg

DRUGS (4)
  1. CC-5013 [Suspect]
     Indication: MULTIPLE MYELOMA
     Route: 048
     Dates: start: 20101207, end: 20101227
  2. PREDNISONE TAB [Suspect]
     Indication: MULTIPLE MYELOMA
     Dosage: 2 MG/KG/DAY
     Dates: start: 20070904, end: 20080419
  3. MELPHALAN [Suspect]
     Indication: MULTIPLE MYELOMA
     Dosage: 0.18 MG/KG/DAY
     Dates: start: 20070904, end: 20080419
  4. CC-5013 [Suspect]
     Route: 048
     Dates: start: 20070904, end: 20100531

REACTIONS (1)
  - ACUTE MYELOID LEUKAEMIA [None]
